FAERS Safety Report 25173883 (Version 1)
Quarter: 2025Q2

REPORT INFORMATION
  Report Type: Report from Study
  Country: CA (occurrence: CA)
  Receive Date: 20250408
  Receipt Date: 20250408
  Transmission Date: 20250716
  Serious: Yes (Other)
  Sender: AMGEN
  Company Number: CA-AMGEN-CANSL2025064694

PATIENT
  Sex: Female

DRUGS (2)
  1. WEZLANA [Suspect]
     Active Substance: USTEKINUMAB-AUUB
     Indication: Psoriatic arthropathy
     Route: 065
     Dates: start: 20241005
  2. WEZLANA [Suspect]
     Active Substance: USTEKINUMAB-AUUB
     Route: 065

REACTIONS (2)
  - Psoriatic arthropathy [Unknown]
  - Therapy partial responder [Unknown]
